FAERS Safety Report 9375710 (Version 1)
Quarter: 2013Q2

REPORT INFORMATION
  Report Type: Spontaneous
  Country: IL (occurrence: IL)
  Receive Date: 20130628
  Receipt Date: 20130628
  Transmission Date: 20140414
  Serious: Yes (Death, Hospitalization, Other)
  Sender: FDA-Public Use
  Company Number: IL-BAXTER-2013BAX025097

PATIENT
  Age: 65 Year
  Sex: Female

DRUGS (4)
  1. ENDOXAN-1G [Suspect]
     Indication: INTERSTITIAL LUNG DISEASE
     Route: 042
  2. ENDOXAN-1G [Suspect]
  3. GAMMAGARD [Suspect]
     Indication: PULMONARY ALVEOLAR HAEMORRHAGE
     Route: 065
  4. METHYLPREDNISOLONE [Suspect]
     Indication: PULMONARY ALVEOLAR HAEMORRHAGE
     Route: 042

REACTIONS (8)
  - Sepsis [Fatal]
  - Hepatitis B [Unknown]
  - Pulmonary alveolar haemorrhage [Unknown]
  - Drug ineffective [Not Recovered/Not Resolved]
  - Thrombocytopenia [Unknown]
  - Dyspnoea [Unknown]
  - Pyrexia [Unknown]
  - Cough [Unknown]
